FAERS Safety Report 19410459 (Version 1)
Quarter: 2021Q2

REPORT INFORMATION
  Report Type: Spontaneous
  Country: US (occurrence: US)
  Receive Date: 20210613
  Receipt Date: 20210613
  Transmission Date: 20210717
  Serious: Yes (Hospitalization)
  Sender: FDA-Public Use
  Company Number: None

PATIENT
  Age: 66 Year
  Sex: Female
  Weight: 90 kg

DRUGS (8)
  1. IBRANCE [Suspect]
     Active Substance: PALBOCICLIB
     Indication: BREAST CANCER
     Dosage: OTHER FREQUENCY:DAILY X 21 DAYS;?
     Route: 048
     Dates: start: 20210501
  2. ALPRAZOLAM. [Concomitant]
     Active Substance: ALPRAZOLAM
  3. ZOLEDRONIC ACID [Concomitant]
     Active Substance: ZOLEDRONIC ACID
  4. AMLODIPINE [Concomitant]
     Active Substance: AMLODIPINE BESYLATE
  5. OMEPRAZOLE. [Concomitant]
     Active Substance: OMEPRAZOLE
  6. FASLODEX [Concomitant]
     Active Substance: FULVESTRANT
  7. IBRANCE [Concomitant]
     Active Substance: PALBOCICLIB
  8. PERCOCET [Concomitant]
     Active Substance: ACETAMINOPHEN\OXYCODONE HYDROCHLORIDE

REACTIONS (12)
  - Lymphoedema [None]
  - Panic attack [None]
  - Pain [None]
  - Groin pain [None]
  - Dyspnoea [None]
  - Constipation [None]
  - Chest discomfort [None]
  - Dizziness [None]
  - Malaise [None]
  - Soft tissue disorder [None]
  - Hot flush [None]
  - Swelling [None]

NARRATIVE: CASE EVENT DATE: 20210613
